FAERS Safety Report 8223218-9 (Version None)
Quarter: 2012Q1

REPORT INFORMATION
  Report Type: 
  Country: None (occurrence: None)
  Receive Date: 20120321
  Receipt Date: 20120307
  Transmission Date: 20120608
  Serious: Yes (Hospitalization)
  Sender: FDA-Public Use
  Company Number: ID-ROCHE-1050126

PATIENT
  Age: 15 Year
  Sex: Female

DRUGS (5)
  1. CYCLOPHOSPHAMIDE [Concomitant]
  2. VINCRISTINE [Concomitant]
  3. PREDNISOLONE [Concomitant]
  4. MABTHERA [Suspect]
     Indication: NON-HODGKIN'S LYMPHOMA
     Route: 042
     Dates: start: 20120222
  5. DOXORUBICIN HCL [Concomitant]

REACTIONS (2)
  - PLEURAL EFFUSION [None]
  - DYSPNOEA [None]
